FAERS Safety Report 11002055 (Version 2)
Quarter: 2016Q1

REPORT INFORMATION
  Report Type: Report from Study
  Country: US (occurrence: US)
  Receive Date: 20150408
  Receipt Date: 20160128
  Transmission Date: 20160525
  Serious: Yes (Hospitalization)
  Sender: FDA-Public Use
  Company Number: PHEH2015US006227

PATIENT
  Sex: Male
  Weight: 71.66 kg

DRUGS (1)
  1. GILENYA [Suspect]
     Active Substance: FINGOLIMOD HYDROCHLORIDE
     Indication: MULTIPLE SCLEROSIS
     Dosage: 0.5 MG, QD
     Route: 048
     Dates: start: 20141216

REACTIONS (11)
  - Contusion [Not Recovered/Not Resolved]
  - Eye injury [Not Recovered/Not Resolved]
  - Eye contusion [Unknown]
  - Weight decreased [Unknown]
  - Tenderness [Not Recovered/Not Resolved]
  - Loss of consciousness [Not Recovered/Not Resolved]
  - Wrist fracture [Not Recovered/Not Resolved]
  - Rib fracture [Unknown]
  - Ear injury [Not Recovered/Not Resolved]
  - Fall [Unknown]
  - Cataract [Unknown]
